FAERS Safety Report 9251275 (Version 2)
Quarter: 2013Q2

REPORT INFORMATION
  Report Type: Spontaneous
  Country: US (occurrence: US)
  Receive Date: 20130424
  Receipt Date: 20130514
  Transmission Date: 20140414
  Serious: Yes (Other)
  Sender: FDA-Public Use
  Company Number: US-LUNDBECK-DKLU1090404

PATIENT
  Age: 44 Year
  Sex: Male

DRUGS (1)
  1. SABRIL (TABLET) [Suspect]
     Indication: PRODUCT USED FOR UNKNOWN INDICATION
     Dosage: DECREASED BY 500 MG EVERY 2 WEEKS
     Dates: end: 201301

REACTIONS (3)
  - Retinal disorder [Unknown]
  - Visual acuity reduced [Unknown]
  - Visual field tests abnormal [Unknown]
